FAERS Safety Report 7048304-0 (Version None)
Quarter: 2010Q4

REPORT INFORMATION
  Report Type: 
  Country: None (occurrence: None)
  Receive Date: 20101015
  Receipt Date: 20101006
  Transmission Date: 20110411
  Serious: Yes (Other)
  Sender: FDA-Public Use
  Company Number: US-US-EMD SERONO, INC.-7019369

PATIENT
  Sex: Female

DRUGS (3)
  1. REBIF [Suspect]
     Indication: MULTIPLE SCLEROSIS
     Route: 058
     Dates: start: 20100831, end: 20100901
  2. REBIF [Suspect]
     Route: 058
     Dates: start: 20100901, end: 20100923
  3. PROVIGIL [Concomitant]
     Indication: MULTIPLE SCLEROSIS
     Dates: start: 20090101

REACTIONS (10)
  - ARTHRALGIA [None]
  - ASTHENIA [None]
  - DEPRESSION [None]
  - FATIGUE [None]
  - FEAR [None]
  - INAPPROPRIATE SCHEDULE OF DRUG ADMINISTRATION [None]
  - INFLUENZA [None]
  - MUSCULAR WEAKNESS [None]
  - SLEEP TERROR [None]
  - SUICIDAL IDEATION [None]
